FAERS Safety Report 6751858-2 (Version None)
Quarter: 2010Q2

REPORT INFORMATION
  Report Type: 
  Country: None (occurrence: None)
  Receive Date: 20100602
  Receipt Date: 20100524
  Transmission Date: 20101027
  Serious: Yes (Other)
  Sender: FDA-Public Use
  Company Number: CA-JNJFOC-20100509359

PATIENT
  Sex: Male

DRUGS (2)
  1. TRAMADOL HCL [Suspect]
     Indication: ARTHRALGIA
     Route: 048
  2. TRAMADOL HCL [Suspect]
     Route: 048

REACTIONS (4)
  - ABASIA [None]
  - FALL [None]
  - MALAISE [None]
  - PAIN [None]
